FAERS Safety Report 22398734 (Version 1)
Quarter: 2023Q2

REPORT INFORMATION
  Report Type: Spontaneous
  Country: CN (occurrence: CN)
  Receive Date: 20230602
  Receipt Date: 20230602
  Transmission Date: 20230721
  Serious: Yes (Hospitalization, Other)
  Sender: FDA-Public Use
  Company Number: None

PATIENT
  Age: 53 Year
  Sex: Female
  Weight: 56 kg

DRUGS (4)
  1. CYCLOPHOSPHAMIDE [Suspect]
     Active Substance: CYCLOPHOSPHAMIDE
     Indication: Breast cancer female
     Dosage: 900 MG, QD, DILUTED WITH 500 ML OF 0.9% SODIUM CHLORIDE INJECTION
     Route: 042
     Dates: start: 20230417, end: 20230417
  2. SODIUM CHLORIDE [Suspect]
     Active Substance: SODIUM CHLORIDE
     Indication: Medication dilution
     Dosage: 500 ML, QD, USED TO DILUTE 900 MG OF CYCLOPHOSPHAMIDE (STRENGTH-0.9%, DOSAGE FORM-INJECTION)
     Route: 042
     Dates: start: 20230417, end: 20230417
  3. SODIUM CHLORIDE [Suspect]
     Active Substance: SODIUM CHLORIDE
     Dosage: 500 ML, QD, USED TO DILUTE 50 MG OF DOXORUBICIN HYDROCHLORIDE LIPOSOME (STRENGTH-0.9%, DOSAGE FORM-I
     Route: 042
     Dates: start: 20230417, end: 20230417
  4. DOXORUBICIN HYDROCHLORIDE [Suspect]
     Active Substance: DOXORUBICIN HYDROCHLORIDE
     Indication: Breast cancer female
     Dosage: 50 MG, QD, DILUTED WITH 500 ML OF 0.9% SODIUM CHLORIDE INJECTION
     Route: 042
     Dates: start: 20230417, end: 20230417

REACTIONS (2)
  - Drug-induced liver injury [Unknown]
  - Transaminases abnormal [Unknown]

NARRATIVE: CASE EVENT DATE: 20230508
